FAERS Safety Report 9391263 (Version 1)
Quarter: 2013Q3

REPORT INFORMATION
  Report Type: Spontaneous
  Country: US (occurrence: US)
  Receive Date: 20130709
  Receipt Date: 20130709
  Transmission Date: 20140515
  Serious: No
  Sender: FDA-Public Use
  Company Number: US-009507513-1307USA004382

PATIENT
  Sex: Female

DRUGS (1)
  1. LOTRIMIN AF [Suspect]
     Indication: ONYCHOMYCOSIS
     Dosage: UNK, UNKNOWN
     Route: 061

REACTIONS (3)
  - Incorrect drug administration duration [Unknown]
  - Expired drug administered [Unknown]
  - Off label use [Unknown]
